FAERS Safety Report 11341603 (Version 1)
Quarter: 2015Q3

REPORT INFORMATION
  Report Type: Report from Study
  Country: VE (occurrence: VE)
  Receive Date: 20150805
  Receipt Date: 20150805
  Transmission Date: 20151125
  Serious: Yes (Hospitalization, Other)
  Sender: FDA-Public Use
  Company Number: PHHY2015VE093896

PATIENT
  Age: 66 Year
  Sex: Female

DRUGS (3)
  1. HIPERLIPEN [Concomitant]
     Active Substance: CIPROFIBRATE
     Indication: BLOOD TRIGLYCERIDES INCREASED
     Dosage: 100 MG, QD
     Route: 065
     Dates: start: 201506, end: 201507
  2. SANDOSTATIN LAR DEPOT [Suspect]
     Active Substance: OCTREOTIDE ACETATE
     Indication: CARCINOID TUMOUR OF THE PANCREAS
     Dosage: 30 MG, QMO
     Route: 030
     Dates: start: 201409
  3. AMARYL [Concomitant]
     Active Substance: GLIMEPIRIDE
     Indication: PANCREATOGENOUS DIABETES
     Dosage: 2/1000 OT, QD
     Route: 065
     Dates: start: 201501, end: 201507

REACTIONS (16)
  - Abasia [Unknown]
  - Injection site pain [Unknown]
  - Pain [Unknown]
  - Blood glucose increased [Unknown]
  - Scar [Unknown]
  - Purulent discharge [Unknown]
  - Decreased appetite [Unknown]
  - Hiatus hernia [Unknown]
  - Gastrooesophageal reflux disease [Unknown]
  - Cough [Unknown]
  - Lip exfoliation [Unknown]
  - Nausea [Unknown]
  - Dry skin [Unknown]
  - Dysphagia [Unknown]
  - Rash macular [Unknown]
  - Mouth swelling [Unknown]

NARRATIVE: CASE EVENT DATE: 201501
